FAERS Safety Report 21045159 (Version 2)
Quarter: 2022Q3

REPORT INFORMATION
  Report Type: Spontaneous
  Country: DE (occurrence: DE)
  Receive Date: 20220705
  Receipt Date: 20220819
  Transmission Date: 20221027
  Serious: Yes (Death, Other)
  Sender: FDA-Public Use
  Company Number: DE-SANOFI-01172370

PATIENT
  Age: 44 Year
  Sex: Male
  Weight: 80 kg

DRUGS (3)
  1. DUPIXENT [Suspect]
     Active Substance: DUPILUMAB
     Indication: Asthma
     Dosage: UNK
     Route: 058
     Dates: start: 20210318, end: 20210503
  2. ALBUTEROL [Concomitant]
     Active Substance: ALBUTEROL
  3. PIROXICAM [Concomitant]
     Active Substance: PIROXICAM

REACTIONS (5)
  - Myocardial infarction [Fatal]
  - Eosinophilic granulomatosis with polyangiitis [Fatal]
  - Hypereosinophilic syndrome [Fatal]
  - Dermatitis [Unknown]
  - Arthralgia [Unknown]

NARRATIVE: CASE EVENT DATE: 20210401
